FAERS Safety Report 9277013 (Version 2)
Quarter: 2013Q2

REPORT INFORMATION
  Report Type: Spontaneous
  Country: JP (occurrence: JP)
  Receive Date: 20130507
  Receipt Date: 20130529
  Transmission Date: 20140414
  Serious: Yes (Other)
  Sender: FDA-Public Use
  Company Number: JP-B.I. PHARMACEUTICALS,INC./RIDGEFIELD-2013-BI-11797NB

PATIENT
  Age: 68 Year
  Sex: Male

DRUGS (4)
  1. MIRAPEX LA [Suspect]
     Indication: PARKINSON^S DISEASE
     Dosage: 1.5 MG
     Route: 065
     Dates: start: 201208, end: 20130324
  2. MIRAPEX LA [Suspect]
     Dosage: 3 MG
     Route: 065
     Dates: start: 20130325
  3. BI-SIFROL [Suspect]
     Route: 065
     Dates: end: 201208
  4. MENESIT [Concomitant]
     Indication: PARKINSON^S DISEASE
     Dosage: 300 MG
     Route: 065

REACTIONS (3)
  - Prostatic operation [Unknown]
  - Benign prostatic hyperplasia [Unknown]
  - Pollakiuria [Unknown]
